FAERS Safety Report 8966937 (Version 1)
Quarter: 2012Q4

REPORT INFORMATION
  Report Type: 
  Country: US (occurrence: US)
  Receive Date: 20121217
  Receipt Date: 20121217
  Transmission Date: 20130627
  Serious: No
  Sender: FDA-Public Use
  Company Number: US-VERTEX PHARMACEUTICALS INC.-AE-2012-003644

PATIENT
  Age: 54 Year
  Sex: Female

DRUGS (3)
  1. VX-950 (TELAPREVIR) [Suspect]
     Indication: HEPATITIS C
     Dosage: UNK
     Route: 048
     Dates: start: 20120127, end: 20120420
  2. PEGINTRON                          /01543001/ [Suspect]
     Indication: HEPATITIS C
     Dosage: 180 ?g, UNK
     Route: 058
     Dates: start: 20120127
  3. RIBASPHERE [Suspect]
     Indication: HEPATITIS C
     Dosage: 800 mg, UNK
     Route: 048
     Dates: start: 20120127

REACTIONS (4)
  - Stomatitis [Recovered/Resolved]
  - Rash papular [Not Recovered/Not Resolved]
  - Dysgeusia [Recovered/Resolved]
  - Pruritus [Unknown]
